FAERS Safety Report 17450034 (Version 1)
Quarter: 2020Q1

REPORT INFORMATION
  Report Type: Spontaneous
  Country: US (occurrence: US)
  Receive Date: 20200224
  Receipt Date: 20200224
  Transmission Date: 20200409
  Serious: No
  Sender: FDA-Public Use
  Company Number: US-ASTRAZENECA-2020SE17315

PATIENT
  Sex: Female
  Weight: 74.8 kg

DRUGS (3)
  1. XARELTO [Concomitant]
     Active Substance: RIVAROXABAN
     Indication: ANTICOAGULANT THERAPY
     Route: 048
     Dates: start: 201903
  2. SYMBICORT [Suspect]
     Active Substance: BUDESONIDE\FORMOTEROL FUMARATE DIHYDRATE
     Indication: LUNG DISORDER
     Dosage: 1 PUFF, TWICE DAILY
     Route: 055
     Dates: start: 201903
  3. B6 [Concomitant]
     Active Substance: PYRIDOXINE HYDROCHLORIDE
     Indication: ENERGY INCREASED
     Route: 048
     Dates: start: 201910

REACTIONS (4)
  - Intentional product misuse [Unknown]
  - Gait disturbance [Unknown]
  - Confusional state [Unknown]
  - Dyspnoea [Unknown]
